FAERS Safety Report 5514447-3 (Version None)
Quarter: 2007Q4

REPORT INFORMATION
  Report Type: 
  Country: None (occurrence: None)
  Receive Date: 20071113
  Receipt Date: 20070611
  Transmission Date: 20080405
  Serious: No
  Sender: FDA-Public Use
  Company Number: A0652440A

PATIENT
  Age: 66 Year
  Sex: Female
  Weight: 90.9 kg

DRUGS (4)
  1. COREG [Suspect]
     Route: 048
     Dates: start: 20070413, end: 20070528
  2. TRICOR [Concomitant]
     Dosage: 145MG PER DAY
     Route: 048
  3. LASIX [Concomitant]
     Dosage: 40MG PER DAY
     Route: 048
  4. INSULIN [Concomitant]

REACTIONS (7)
  - CRYING [None]
  - DYSPNOEA [None]
  - FATIGUE [None]
  - HYPOTENSION [None]
  - MUSCULAR WEAKNESS [None]
  - MYALGIA [None]
  - TEARFULNESS [None]
